FAERS Safety Report 8445521-X (Version None)
Quarter: 2012Q2

REPORT INFORMATION
  Report Type: 
  Country: None (occurrence: None)
  Receive Date: 20120618
  Receipt Date: 20120613
  Transmission Date: 20120825
  Serious: Yes (Hospitalization, Disabling)
  Sender: FDA-Public Use
  Company Number: US-MERCK-1201USA00879

PATIENT
  Age: 63 Year
  Sex: Female
  Weight: 63 kg

DRUGS (5)
  1. CARDIZEM [Concomitant]
     Indication: HYPERTENSION
     Route: 065
  2. COZAAR [Concomitant]
     Route: 048
  3. EVISTA [Concomitant]
     Route: 065
  4. FOSAMAX [Suspect]
     Indication: OSTEOPOROSIS
     Route: 048
     Dates: start: 20060101, end: 20100101
  5. HYDROCHLOROTHIAZIDE [Concomitant]
     Route: 065

REACTIONS (15)
  - URINARY TRACT INFECTION [None]
  - BONE CYST [None]
  - VERTIGO [None]
  - GASTRITIS [None]
  - TENDON RUPTURE [None]
  - CYSTITIS [None]
  - HYPOKALAEMIA [None]
  - INTERVERTEBRAL DISC PROTRUSION [None]
  - SPONDYLOLISTHESIS [None]
  - VITAMIN D DEFICIENCY [None]
  - FEMUR FRACTURE [None]
  - ANAEMIA [None]
  - OSTEOARTHRITIS [None]
  - HUMERUS FRACTURE [None]
  - DIABETES MELLITUS [None]
